FAERS Safety Report 9037279 (Version 1)
Quarter: 2013Q1

REPORT INFORMATION
  Report Type: Spontaneous
  Country: US (occurrence: None)
  Receive Date: 20130123
  Receipt Date: 20130123
  Transmission Date: 20140127
  Serious: Yes (Other)
  Sender: FDA-Public Use
  Company Number: None

PATIENT
  Age: 42 Year
  Sex: Female
  Weight: 63.05 kg

DRUGS (1)
  1. REMICADE-INFLIXIMAB 100 MG JANSSEN [Suspect]
     Indication: CROHN^S DISEASE
     Dates: start: 20130116, end: 20130116

REACTIONS (2)
  - Infusion related reaction [None]
  - Anaphylactic reaction [None]
